FAERS Safety Report 20552264 (Version 13)
Quarter: 2022Q4

REPORT INFORMATION
  Report Type: Spontaneous
  Country: CA (occurrence: CA)
  Receive Date: 20220304
  Receipt Date: 20221220
  Transmission Date: 20230113
  Serious: Yes (Other)
  Sender: FDA-Public Use
  Company Number: CA-CELLTRION INC.-2022CA002609

PATIENT

DRUGS (19)
  1. INFLECTRA [Suspect]
     Active Substance: INFLIXIMAB-DYYB
     Indication: Rheumatoid arthritis
     Dosage: 200MG, 0,2,6 THEN EVERY 8 WEEKS
     Route: 042
     Dates: start: 20220207
  2. INFLECTRA [Suspect]
     Active Substance: INFLIXIMAB-DYYB
     Dosage: 200 MG, 0,2,6 THEN EVERY 8 WEEKS
     Route: 042
     Dates: start: 20220222
  3. INFLECTRA [Suspect]
     Active Substance: INFLIXIMAB-DYYB
     Dosage: 200 MG, 0,2,6 THEN EVERY 8 WEEKS
     Route: 042
     Dates: start: 20220414
  4. INFLECTRA [Suspect]
     Active Substance: INFLIXIMAB-DYYB
     Dosage: 200 MG, 0,2,6 THEN EVERY 8 WEEKS
     Route: 042
     Dates: start: 20220613
  5. INFLECTRA [Suspect]
     Active Substance: INFLIXIMAB-DYYB
     Dosage: 200 MG, 0,2,6 THEN EVERY 8 WEEKS
     Route: 042
     Dates: start: 20220804
  6. INFLECTRA [Suspect]
     Active Substance: INFLIXIMAB-DYYB
     Dosage: 200 MG, 0,2,6 THEN EVERY 8 WEEKS
     Route: 042
     Dates: start: 20221209
  7. AMLODIPINE [Concomitant]
     Active Substance: AMLODIPINE BESYLATE
     Dosage: 1 DF DOSE UNK
     Route: 065
  8. DEXILANT [Concomitant]
     Active Substance: DEXLANSOPRAZOLE
     Dosage: 1 DF, DOSE UNK
     Route: 065
  9. DULOXETINE [Concomitant]
     Active Substance: DULOXETINE
     Dosage: 1 DF, DOSE UNK
     Route: 065
  10. GRAVOL L/A [Concomitant]
     Dosage: 1 DF, DOSE UNK
     Route: 065
  11. HYRIMOZ [Concomitant]
     Active Substance: ADALIMUMAB-ADAZ
     Dosage: 1 DF
     Route: 065
  12. HYRIMOZ [Concomitant]
     Active Substance: ADALIMUMAB-ADAZ
     Dosage: 1 DF, DOSE UNK
     Route: 058
  13. IRBESARTAN [Concomitant]
     Active Substance: IRBESARTAN
     Dosage: 1 DF DOSE UNK
     Route: 065
  14. MAGNESIUM CITRATE [Concomitant]
     Active Substance: MAGNESIUM CITRATE
     Dosage: 1 DF DOSE UNK
     Route: 065
  15. NALTREXONE [Concomitant]
     Active Substance: NALTREXONE
     Dosage: 1 DF, DOSE UNK
     Route: 065
  16. ONDANSETRON HYDROCHLORIDE [Concomitant]
     Active Substance: ONDANSETRON HYDROCHLORIDE
     Dosage: 1 DF, DOSE UNK
     Route: 065
  17. PRAVASTATIN [Concomitant]
     Active Substance: PRAVASTATIN
     Dosage: 1 DF, DOSE UNK
     Route: 065
  18. TYLENOL WITH CODEINE [Concomitant]
     Active Substance: ACETAMINOPHEN\CODEINE PHOSPHATE
     Dosage: 1 DF, DOSE UNK
     Route: 065
  19. ZOPICLONE [Concomitant]
     Active Substance: ZOPICLONE
     Dosage: 1 DF, DOSE UNK
     Route: 065

REACTIONS (21)
  - Weight decreased [Unknown]
  - Constipation [Unknown]
  - Off label use [Unknown]
  - Off label use [Unknown]
  - Inappropriate schedule of product administration [Unknown]
  - Pain [Not Recovered/Not Resolved]
  - Peripheral swelling [Unknown]
  - Arthralgia [Unknown]
  - Abdominal discomfort [Not Recovered/Not Resolved]
  - COVID-19 [Recovered/Resolved]
  - Asthenia [Recovered/Resolved]
  - Tremor [Recovered/Resolved]
  - Nausea [Recovered/Resolved]
  - Fibromuscular dysplasia [Unknown]
  - Feeling abnormal [Unknown]
  - Asthenia [Unknown]
  - Illness [Not Recovered/Not Resolved]
  - Memory impairment [Unknown]
  - Defaecation urgency [Recovered/Resolved]
  - Malaise [Unknown]
  - COVID-19 [Not Recovered/Not Resolved]

NARRATIVE: CASE EVENT DATE: 20220101
